FAERS Safety Report 21670713 (Version 1)
Quarter: 2022Q4

REPORT INFORMATION
  Report Type: Spontaneous
  Country: ET (occurrence: ET)
  Receive Date: 20221202
  Receipt Date: 20221202
  Transmission Date: 20230113
  Serious: Yes (Death, Life-Threatening, Hospitalization, Other)
  Sender: FDA-Public Use
  Company Number: None

PATIENT
  Age: 39 Year
  Sex: Female

DRUGS (17)
  1. PREDNISOLONE [Suspect]
     Active Substance: PREDNISOLONE
     Indication: Angle closure glaucoma
     Dosage: 20 MILLIGRAM PER DAY
     Route: 048
     Dates: start: 2021
  2. DEXAMETHASONE [Suspect]
     Active Substance: DEXAMETHASONE
     Indication: COVID-19
     Dosage: UNK
     Route: 065
  3. DEXAMETHASONE [Suspect]
     Active Substance: DEXAMETHASONE
     Dosage: 6 MILLIGRAM PER DAY
     Route: 042
     Dates: start: 2021, end: 2021
  4. VANCOMYCIN [Suspect]
     Active Substance: VANCOMYCIN
     Indication: Pneumonia bacterial
     Dosage: UNK
     Route: 065
     Dates: start: 2021, end: 2021
  5. AZITHROMYCIN [Suspect]
     Active Substance: AZITHROMYCIN
     Indication: Pneumonia bacterial
     Dosage: UNK
     Route: 065
     Dates: start: 2021, end: 2021
  6. CEFTRIAXONE\SULBACTAM [Suspect]
     Active Substance: CEFTRIAXONE\SULBACTAM
     Indication: Pneumonia bacterial
     Dosage: 1.5 MILLIGRAM, BID
     Route: 042
     Dates: start: 2021, end: 2021
  7. HEPARIN [Concomitant]
     Active Substance: HEPARIN SODIUM
     Indication: COVID-19
     Dosage: 17500 IU, BID
     Route: 058
     Dates: start: 2021, end: 2021
  8. VITAMIN C [Concomitant]
     Active Substance: ASCORBIC ACID
     Indication: COVID-19
     Dosage: 200 MILLIGRAM PER DAY
     Route: 048
     Dates: start: 2021, end: 2021
  9. ZINC [Concomitant]
     Active Substance: ZINC
     Indication: COVID-19
     Dosage: 20 MILLIGRAM PER DAY
     Route: 048
     Dates: start: 2021, end: 2021
  10. TIMOLOL [Concomitant]
     Active Substance: TIMOLOL
     Indication: Angle closure glaucoma
     Dosage: UNK UNK, BID (EYE DROP)
     Route: 065
     Dates: start: 2021, end: 2021
  11. TROPICAMIDE [Concomitant]
     Active Substance: TROPICAMIDE
     Indication: Angle closure glaucoma
     Dosage: UNK UNK, TID (EYE DROP- THREE TIMES A DAY)
     Route: 031
     Dates: start: 2021, end: 2021
  12. ACETAZOLAMIDE [Concomitant]
     Active Substance: ACETAZOLAMIDE
     Indication: Angle closure glaucoma
     Dosage: 250 MILLIGRAM
     Route: 048
     Dates: start: 2021, end: 2021
  13. VALPROATE SODIUM [Concomitant]
     Active Substance: VALPROATE SODIUM
     Indication: Cerebral palsy
     Dosage: 200 MILLIGRAM PER DAY
     Route: 048
  14. INSULIN PROTAMINE ZINC [Concomitant]
     Active Substance: INSULIN NOS
     Indication: Type 2 diabetes mellitus
     Dosage: UNK (16/8) PER 0.5 DAY
     Route: 058
     Dates: start: 2021, end: 2021
  15. INSULIN PROTAMINE ZINC [Concomitant]
     Active Substance: INSULIN NOS
     Dosage: UNK (28/14) PER 0.5 DAY
     Route: 058
     Dates: start: 2021, end: 2021
  16. INSULIN NOS [Concomitant]
     Active Substance: INSULIN NOS
     Indication: Type 2 diabetes mellitus
     Dosage: UNK
     Route: 065
     Dates: start: 2021, end: 2021
  17. OXYGEN [Concomitant]
     Active Substance: OXYGEN
     Indication: Product used for unknown indication
     Dosage: 6 LITER PER 1 MIN
     Route: 065

REACTIONS (8)
  - Multiple organ dysfunction syndrome [Fatal]
  - Septic shock [Fatal]
  - Rhinocerebral mucormycosis [Fatal]
  - Cellulitis orbital [Fatal]
  - Lung consolidation [Fatal]
  - Staphylococcal infection [Unknown]
  - Endophthalmitis [Unknown]
  - Off label use [Unknown]

NARRATIVE: CASE EVENT DATE: 20210101
